FAERS Safety Report 18256585 (Version 1)
Quarter: 2020Q3

REPORT INFORMATION
  Report Type: Spontaneous
  Country: US (occurrence: US)
  Receive Date: 20200910
  Receipt Date: 20200910
  Transmission Date: 20201103
  Serious: No
  Sender: FDA-Public Use
  Company Number: None

PATIENT
  Age: 66 Year
  Sex: Female

DRUGS (8)
  1. SULFASALAZINE. [Concomitant]
     Active Substance: SULFASALAZINE
  2. VITAMIN D2 [Concomitant]
     Active Substance: ERGOCALCIFEROL
  3. FOLIC ACID. [Concomitant]
     Active Substance: FOLIC ACID
  4. TORSEMIDE. [Concomitant]
     Active Substance: TORSEMIDE
  5. FERROUS SULFATE IRON [Concomitant]
  6. ASPIRIN. [Concomitant]
     Active Substance: ASPIRIN
  7. LETAIRIS [Suspect]
     Active Substance: AMBRISENTAN
  8. ATENOLOL. [Concomitant]
     Active Substance: ATENOLOL

REACTIONS (1)
  - Fluid retention [None]

NARRATIVE: CASE EVENT DATE: 20200910
